FAERS Safety Report 20687212 (Version 1)
Quarter: 2022Q2

REPORT INFORMATION
  Report Type: Spontaneous
  Country: US (occurrence: US)
  Receive Date: 20220407
  Receipt Date: 20220407
  Transmission Date: 20220720
  Serious: No
  Sender: FDA-Public Use
  Company Number: US-BEH-2022143770

PATIENT
  Age: 46 Year
  Sex: Male

DRUGS (1)
  1. HIZENTRA [Suspect]
     Active Substance: HUMAN IMMUNOGLOBULIN G
     Indication: Immunodeficiency common variable
     Dosage: 10 GRAM, QW
     Route: 058
     Dates: start: 20191017

REACTIONS (3)
  - Micturition urgency [Unknown]
  - Pollakiuria [Unknown]
  - Urine output decreased [Unknown]

NARRATIVE: CASE EVENT DATE: 20220201
